FAERS Safety Report 10589465 (Version 1)
Quarter: 2014Q4

REPORT INFORMATION
  Report Type: Spontaneous
  Country: US (occurrence: None)
  Receive Date: 20141114
  Receipt Date: 20141114
  Transmission Date: 20150529
  Serious: Yes (Life-Threatening, Hospitalization, Other)
  Sender: FDA-Public Use
  Company Number: ADR-2014-02102

PATIENT
  Age: 56 Year
  Sex: Female

DRUGS (3)
  1. COMPOUNDED BACLOFEN INTRATHECAL [Suspect]
     Active Substance: BACLOFEN
     Indication: MUSCLE SPASTICITY
  2. COMPOUNDED MORPHINE INTRATHECAL [Suspect]
     Active Substance: MORPHINE
  3. BUPIVACAINE [Suspect]
     Active Substance: BUPIVACAINE
     Dosage: (7.5 MG; 1.4988 MG/DAY)

REACTIONS (45)
  - Seizure [None]
  - Cerebrovascular accident [None]
  - Flashback [None]
  - Economic problem [None]
  - Loss of consciousness [None]
  - Emotional distress [None]
  - Pyrexia [None]
  - Sedation [None]
  - Aphasia [None]
  - Asthenia [None]
  - Withdrawal syndrome [None]
  - Respiratory failure [None]
  - Scar [None]
  - Delirium [None]
  - Nausea [None]
  - Malaise [None]
  - Toxic encephalopathy [None]
  - Myocardial infarction [None]
  - Nightmare [None]
  - Somnolence [None]
  - Anxiety [None]
  - Device infusion issue [None]
  - Drug effect decreased [None]
  - Coma [None]
  - Pain [None]
  - Haemorrhage [None]
  - Pneumonia aspiration [None]
  - Device dislocation [None]
  - Device defective [None]
  - Hypoxic-ischaemic encephalopathy [None]
  - Cognitive disorder [None]
  - Personality change [None]
  - Mental status changes [None]
  - Device occlusion [None]
  - Thirst [None]
  - Amnesia [None]
  - Craniocerebral injury [None]
  - Respiratory depression [None]
  - Cardio-respiratory arrest [None]
  - Hypoxia [None]
  - Hypercapnia [None]
  - Accidental overdose [None]
  - Sepsis [None]
  - Tremor [None]
  - Vomiting [None]

NARRATIVE: CASE EVENT DATE: 20121101
